FAERS Safety Report 12269167 (Version 1)
Quarter: 2016Q2

REPORT INFORMATION
  Report Type: Spontaneous
  Country: IT (occurrence: IT)
  Receive Date: 20160414
  Receipt Date: 20160414
  Transmission Date: 20160815
  Serious: Yes (Other)
  Sender: FDA-Public Use
  Company Number: IT-ELI_LILLY_AND_COMPANY-IT200811002616

PATIENT
  Age: 60 Year
  Sex: Male

DRUGS (7)
  1. COMTAN [Concomitant]
     Active Substance: ENTACAPONE
     Indication: PRODUCT USED FOR UNKNOWN INDICATION
     Dosage: UNK UNK, UNKNOWN
     Route: 065
  2. NOPAR [Suspect]
     Active Substance: PERGOLIDE MESYLATE
     Dosage: UNK, DOSAGE WAS INCREASED
     Route: 065
     Dates: start: 20010214
  3. SINEMET PLUS [Concomitant]
     Active Substance: CARBIDOPA\LEVODOPA
     Indication: PRODUCT USED FOR UNKNOWN INDICATION
     Dosage: 1 DF, UNKNOWN
     Route: 065
  4. NOPAR [Suspect]
     Active Substance: PERGOLIDE MESYLATE
     Indication: PARKINSON^S DISEASE
     Dosage: UNK, UNKNOWN
     Route: 065
     Dates: start: 19990327
  5. MANTADAN [Concomitant]
     Active Substance: AMANTADINE HYDROCHLORIDE
     Indication: PARKINSON^S DISEASE
     Dosage: UNK, UNKNOWN
     Route: 065
     Dates: start: 19961107, end: 1999
  6. NOPAR [Suspect]
     Active Substance: PERGOLIDE MESYLATE
     Dosage: UNK, DOSAGE WAS FURTHER INCREASED
     Dates: start: 20010926, end: 200707
  7. MIRAPEXIN [Suspect]
     Active Substance: PRAMIPEXOLE
     Indication: PARKINSON^S DISEASE
     Dosage: UNK, UNKNOWN
     Route: 065
     Dates: start: 20070727

REACTIONS (4)
  - Gambling disorder [Unknown]
  - Impulse-control disorder [Unknown]
  - Cardiac valve sclerosis [Unknown]
  - Hypersexuality [Unknown]

NARRATIVE: CASE EVENT DATE: 20010509
